FAERS Safety Report 4268638-2 (Version None)
Quarter: 2004Q1

REPORT INFORMATION
  Report Type: 
  Country: None (occurrence: None)
  Receive Date: 20040112
  Receipt Date: 20030407
  Transmission Date: 20041129
  Serious: Yes (Death, Hospitalization, Disabling)
  Sender: FDA-Public Use
  Company Number: WAES 0304USA00844

PATIENT
  Age: 85 Year
  Sex: Male
  Weight: 98 kg

DRUGS (2)
  1. VIOXX [Suspect]
     Indication: ARTHRALGIA
     Route: 048
  2. VIOXX [Suspect]
     Route: 048

REACTIONS (24)
  - ANGIOPATHY [None]
  - ANXIETY [None]
  - BACK PAIN [None]
  - BLOOD PRESSURE INCREASED [None]
  - CEREBROVASCULAR ACCIDENT [None]
  - COMPUTERISED TOMOGRAM ABNORMAL [None]
  - DIFFICULTY IN WALKING [None]
  - DIZZINESS [None]
  - DYSPNOEA [None]
  - DYSURIA [None]
  - EMOTIONAL DISTRESS [None]
  - FACIAL PAIN [None]
  - FALL [None]
  - GAIT DISTURBANCE [None]
  - HEADACHE [None]
  - INJURY [None]
  - INSOMNIA [None]
  - NECK PAIN [None]
  - OSTEOARTHRITIS [None]
  - PARAESTHESIA [None]
  - PRURITUS [None]
  - RENAL CYST [None]
  - SUBARACHNOID HAEMORRHAGE [None]
  - VERTIGO [None]
